FAERS Safety Report 19572257 (Version 1)
Quarter: 2021Q3

REPORT INFORMATION
  Report Type: Spontaneous
  Country: US (occurrence: US)
  Receive Date: 20210716
  Receipt Date: 20210716
  Transmission Date: 20211014
  Serious: Yes (Life-Threatening, Hospitalization, Other)
  Sender: FDA-Public Use
  Company Number: US-LUPIN PHARMACEUTICALS INC.-2021-11949

PATIENT
  Age: 5 Hour
  Sex: Female

DRUGS (2)
  1. PHYTONADIONE. [Suspect]
     Active Substance: PHYTONADIONE
     Indication: PRODUCT USED FOR UNKNOWN INDICATION
     Dosage: UNK
     Route: 030
  2. METHYLERGONOVINE [Suspect]
     Active Substance: METHYLERGONOVINE
     Indication: PRODUCT USED FOR UNKNOWN INDICATION
     Dosage: 0.2 MILLIGRAM
     Route: 030

REACTIONS (10)
  - Cyanosis [Recovered/Resolved]
  - Unresponsive to stimuli [Recovered/Resolved]
  - Metabolic acidosis [Recovered/Resolved]
  - Bradycardia neonatal [Recovered/Resolved]
  - Cyanosis central [Recovered/Resolved]
  - Tonic clonic movements [Recovered/Resolved]
  - Neonatal respiratory acidosis [Recovered/Resolved]
  - Infantile apnoea [Recovered/Resolved]
  - Accidental exposure to product [Unknown]
  - Bandaemia [Recovered/Resolved]
